FAERS Safety Report 12188295 (Version 2)
Quarter: 2016Q2

REPORT INFORMATION
  Report Type: Report from Study
  Country: BE (occurrence: BE)
  Receive Date: 20160317
  Receipt Date: 20160628
  Transmission Date: 20160815
  Serious: Yes (Hospitalization)
  Sender: FDA-Public Use
  Company Number: BE-BIOGEN-2016BI00190128

PATIENT
  Age: 35 Year
  Sex: Female

DRUGS (4)
  1. TYSABRI [Suspect]
     Active Substance: NATALIZUMAB
     Indication: MULTIPLE SCLEROSIS
     Dosage: MAINTENENCE DOSE
     Route: 042
     Dates: start: 20130311
  2. D-CURE [Concomitant]
     Indication: PROPHYLAXIS
     Route: 048
     Dates: start: 20130603
  3. NEXIUM [Concomitant]
     Active Substance: ESOMEPRAZOLE MAGNESIUM
     Indication: ABDOMINAL DISCOMFORT
     Route: 048
     Dates: start: 20150825
  4. CYMBALTA [Concomitant]
     Active Substance: DULOXETINE HYDROCHLORIDE
     Indication: HEADACHE
     Route: 048
     Dates: start: 20140825

REACTIONS (1)
  - Hysterectomy [Recovered/Resolved]

NARRATIVE: CASE EVENT DATE: 20150824
